FAERS Safety Report 5368052-2 (Version None)
Quarter: 2007Q2

REPORT INFORMATION
  Report Type: 
  Country: None (occurrence: None)
  Receive Date: 20070622
  Receipt Date: 20070612
  Transmission Date: 20071010
  Serious: Yes (Other)
  Sender: FDA-Public Use
  Company Number: US-PFIZER INC-2007049163

PATIENT
  Sex: Male
  Weight: 84.09 kg

DRUGS (2)
  1. CHANTIX [Suspect]
     Indication: SMOKING CESSATION THERAPY
     Dates: start: 20070601, end: 20070612
  2. CLARITIN [Concomitant]

REACTIONS (10)
  - APATHY [None]
  - COLD SWEAT [None]
  - DEPRESSION [None]
  - FATIGUE [None]
  - FEELING ABNORMAL [None]
  - HOT FLUSH [None]
  - HUNGER [None]
  - IRRITABILITY [None]
  - NAUSEA [None]
  - NIGHTMARE [None]
